FAERS Safety Report 8560409-1 (Version None)
Quarter: 2012Q3

REPORT INFORMATION
  Report Type: 
  Country: None (occurrence: None)
  Receive Date: 20120802
  Receipt Date: 20110601
  Transmission Date: 20120928
  Serious: Yes (Other)
  Sender: FDA-Public Use
  Company Number: US-JNJFOC-20120712000

PATIENT
  Age: 79 Year
  Sex: Female

DRUGS (2)
  1. NICOTINE POLACRILEX [Suspect]
     Indication: SMOKING CESSATION THERAPY
     Dosage: OVER A PERIOD OF 1 WEEKS
     Route: 048
     Dates: start: 20110501, end: 20110501
  2. ZOLOFT [Concomitant]
     Route: 065

REACTIONS (1)
  - DEPRESSION [None]
